FAERS Safety Report 17420433 (Version 1)
Quarter: 2020Q1

REPORT INFORMATION
  Report Type: Spontaneous
  Country: US (occurrence: US)
  Receive Date: 20200214
  Receipt Date: 20200214
  Transmission Date: 20200409
  Serious: No
  Sender: FDA-Public Use
  Company Number: US-GLAXOSMITHKLINE-US2020021541

PATIENT
  Sex: Female

DRUGS (1)
  1. BENLYSTA [Suspect]
     Active Substance: BELIMUMAB
     Indication: PRODUCT USED FOR UNKNOWN INDICATION
     Dosage: 200 MG, WE
     Route: 042
     Dates: start: 20190626

REACTIONS (4)
  - Herpes zoster [Recovered/Resolved]
  - Dizziness [Recovered/Resolved]
  - Laboratory test abnormal [Unknown]
  - Decreased immune responsiveness [Not Recovered/Not Resolved]
